FAERS Safety Report 6529024-5 (Version None)
Quarter: 2009Q4

REPORT INFORMATION
  Report Type: 
  Country: None (occurrence: None)
  Receive Date: 20091229
  Receipt Date: 20091216
  Transmission Date: 20100525
  Serious: Yes (Life-Threatening, Hospitalization, Other)
  Sender: FDA-Public Use
  Company Number: 2009-00108

PATIENT
  Age: 70 Year
  Sex: Female

DRUGS (14)
  1. CEFTRIAXONE [Suspect]
     Indication: PNEUMONIA
  2. SIMVASTATIN [Concomitant]
  3. AMITRIPTYLINE [Concomitant]
  4. ENALAPRIL [Concomitant]
  5. GLYBURIDE [Concomitant]
  6. VERAPAMIL [Concomitant]
  7. OMEPRAZOLE [Concomitant]
  8. ASPIRIN [Concomitant]
  9. THEOPHYLLINE [Concomitant]
  10. FUROSEMIDE [Concomitant]
  11. METFORMIN HYDROCHLORIDE [Concomitant]
  12. CITROPRAM [Concomitant]
  13. DORZOLAMIDE HYDROCHLORIDE EYE DROPS [Concomitant]
  14. LATANOPROST EYE DROPS [Concomitant]

REACTIONS (10)
  - ACUTE RESPIRATORY DISTRESS SYNDROME [None]
  - BLOOD CULTURE POSITIVE [None]
  - ENTEROBACTER INFECTION [None]
  - ENTEROCOCCAL INFECTION [None]
  - HYPOGLYCAEMIA [None]
  - KLEBSIELLA INFECTION [None]
  - PROTEUS INFECTION [None]
  - PSEUDOMONAS INFECTION [None]
  - THROMBOCYTOPENIA [None]
  - TOXIC EPIDERMAL NECROLYSIS [None]
